FAERS Safety Report 21691948 (Version 1)
Quarter: 2022Q4

REPORT INFORMATION
  Report Type: Report from Study
  Country: US (occurrence: US)
  Receive Date: 20221207
  Receipt Date: 20221207
  Transmission Date: 20230112
  Serious: No
  Sender: FDA-Public Use
  Company Number: US-ABBVIE-4188917

PATIENT
  Sex: Female

DRUGS (1)
  1. HUMIRA [Suspect]
     Active Substance: ADALIMUMAB
     Indication: Crohn^s disease
     Route: 058

REACTIONS (6)
  - Blood pressure abnormal [Unknown]
  - Limb injury [Unknown]
  - Drug ineffective [Unknown]
  - Rash [Unknown]
  - Crohn^s disease [Unknown]
  - Nerve injury [Unknown]
